FAERS Safety Report 9140525 (Version 1)
Quarter: 2013Q1

REPORT INFORMATION
  Report Type: Spontaneous
  Country: MX (occurrence: MX)
  Receive Date: 20130305
  Receipt Date: 20130305
  Transmission Date: 20140127
  Serious: Yes (Death)
  Sender: FDA-Public Use
  Company Number: PHHY2013MX021227

PATIENT
  Age: 84 Year
  Sex: Female

DRUGS (1)
  1. STALEVO [Suspect]
     Dosage: 2 DF, (12.5MG/50MG/200MG) DAILY
     Route: 048

REACTIONS (1)
  - Cardiac arrest [Fatal]
